FAERS Safety Report 4918111-0 (Version None)
Quarter: 2006Q1

REPORT INFORMATION
  Report Type: 
  Country: None (occurrence: None)
  Receive Date: 20060221
  Receipt Date: 20060118
  Transmission Date: 20060701
  Serious: Yes (Other)
  Sender: FDA-Public Use
  Company Number: NL-MERCK-0601NLD00012

PATIENT
  Age: 75 Year
  Sex: Male

DRUGS (5)
  1. VIOXX [Suspect]
     Indication: PAIN
     Route: 048
     Dates: start: 20031201, end: 20040824
  2. RABEPRAZOLE SODIUM [Concomitant]
     Route: 048
  3. ALFUZOSIN HYDROCHLORIDE [Concomitant]
     Route: 048
  4. METOPROLOL TARTRATE [Concomitant]
     Route: 048
  5. ASPIRIN [Concomitant]
     Route: 048

REACTIONS (1)
  - CEREBRAL INFARCTION [None]
